FAERS Safety Report 25141449 (Version 1)
Quarter: 2025Q1

REPORT INFORMATION
  Report Type: Spontaneous
  Country: US (occurrence: US)
  Receive Date: 20250331
  Receipt Date: 20250331
  Transmission Date: 20250408
  Serious: Yes (Other)
  Sender: SANOFI AVENTIS
  Company Number: US-SA-2025SA091583

PATIENT
  Sex: Male
  Weight: 100 kg

DRUGS (8)
  1. DUPIXENT [Suspect]
     Active Substance: DUPILUMAB
     Indication: Dermatitis atopic
     Dosage: 300 MG, QOW
     Route: 058
     Dates: start: 202303
  2. LORATADINE [Concomitant]
     Active Substance: LORATADINE
  3. OMEPRAZOLE [Concomitant]
     Active Substance: OMEPRAZOLE
  4. RINVOQ [Concomitant]
     Active Substance: UPADACITINIB
  5. FLUTICASONE PROPIONATE [Concomitant]
     Active Substance: FLUTICASONE PROPIONATE
  6. VITAMINS [Concomitant]
     Active Substance: VITAMINS
  7. TACROLIMUS [Concomitant]
     Active Substance: TACROLIMUS
  8. CLOBETASOL [Concomitant]
     Active Substance: CLOBETASOL

REACTIONS (4)
  - Gastric ulcer [Unknown]
  - Bone disorder [Unknown]
  - Joint lock [Unknown]
  - Gastroenteritis viral [Unknown]
